FAERS Safety Report 10924663 (Version 2)
Quarter: 2015Q2

REPORT INFORMATION
  Report Type: Spontaneous
  Country: US (occurrence: US)
  Receive Date: 20150318
  Receipt Date: 20150524
  Transmission Date: 20150821
  Serious: No
  Sender: FDA-Public Use
  Company Number: US-JNJFOC-20141014129

PATIENT
  Age: 45 Year
  Sex: Female
  Weight: 62.6 kg

DRUGS (1)
  1. NIZORAL A-D [Suspect]
     Active Substance: KETOCONAZOLE
     Indication: DRY SKIN
     Dosage: QUARTER SIZE, ONCE
     Route: 061
     Dates: start: 20141014, end: 20141014

REACTIONS (2)
  - Skin reaction [Recovering/Resolving]
  - Photosensitivity reaction [Recovering/Resolving]

NARRATIVE: CASE EVENT DATE: 20141014
